FAERS Safety Report 9834936 (Version 1)
Quarter: 2014Q1

REPORT INFORMATION
  Report Type: Spontaneous
  Country: DK (occurrence: DK)
  Receive Date: 20140122
  Receipt Date: 20140122
  Transmission Date: 20141002
  Serious: Yes (Life-Threatening)
  Sender: FDA-Public Use
  Company Number: DK-GLAXOSMITHKLINE-B0962355A

PATIENT
  Age: 67 Year
  Sex: Female
  Weight: 81 kg

DRUGS (6)
  1. ARIXTRA [Suspect]
     Indication: ACUTE CORONARY SYNDROME
     Route: 065
     Dates: start: 20131118, end: 20131119
  2. INNOHEP [Suspect]
     Indication: PULMONARY EMBOLISM
     Dosage: 1UNIT PER DAY
     Route: 058
     Dates: start: 20131119, end: 20131122
  3. MAREVAN [Suspect]
     Indication: PULMONARY EMBOLISM
     Dosage: 5MG PER DAY
     Route: 048
     Dates: start: 20131119, end: 20131121
  4. HJERTEMAGNYL [Suspect]
     Indication: ACUTE MYOCARDIAL INFARCTION
     Dosage: 75MG PER DAY
     Route: 048
     Dates: start: 20131118, end: 20131119
  5. BRILIQUE [Suspect]
     Indication: ACUTE MYOCARDIAL INFARCTION
     Route: 048
     Dates: start: 20131118, end: 20131119
  6. FRAGMIN [Concomitant]
     Indication: PULMONARY EMBOLISM

REACTIONS (2)
  - Abdominal wall haematoma [Not Recovered/Not Resolved]
  - Abdominal pain lower [Unknown]
